FAERS Safety Report 4661448-3 (Version None)
Quarter: 2005Q2

REPORT INFORMATION
  Report Type: 
  Country: None (occurrence: None)
  Receive Date: 20050513
  Receipt Date: 20041203
  Transmission Date: 20051028
  Serious: Yes (Hospitalization)
  Sender: FDA-Public Use
  Company Number: GB-GLAXOSMITHKLINE-B0359790A

PATIENT
  Sex: Female

DRUGS (7)
  1. PAROXETINE HCL [Suspect]
     Route: 065
  2. DIAZEPAM [Concomitant]
     Route: 065
  3. HEMINEVRIN [Concomitant]
     Route: 065
  4. CO-PROXAMOL [Concomitant]
     Route: 065
  5. PHYLLOCONTIN [Concomitant]
     Route: 065
  6. ALCOHOL [Concomitant]
     Route: 065
  7. ZOPICLONE [Concomitant]
     Dosage: 7.5MG AT NIGHT
     Route: 065

REACTIONS (4)
  - ILL-DEFINED DISORDER [None]
  - OVERDOSE [None]
  - SUICIDE ATTEMPT [None]
  - WEIGHT INCREASED [None]
